FAERS Safety Report 8256181-5 (Version None)
Quarter: 2012Q2

REPORT INFORMATION
  Report Type: 
  Country: None (occurrence: None)
  Receive Date: 20120403
  Receipt Date: 20120330
  Transmission Date: 20120825
  Serious: Yes (Death, Other)
  Sender: FDA-Public Use
  Company Number: CO-PFIZER INC-2012083182

PATIENT
  Sex: Male

DRUGS (3)
  1. NORVASC [Suspect]
     Dosage: 5 MG, UNK
     Dates: start: 20101003
  2. OLMESARTAN MEDOXOMIL [Suspect]
     Dosage: 20 MG, UNK
     Dates: start: 20101213
  3. LIPITOR [Suspect]
     Dosage: 10 MG, UNK
     Dates: start: 20071003

REACTIONS (1)
  - DEATH [None]
